FAERS Safety Report 25973066 (Version 1)
Quarter: 2025Q4

REPORT INFORMATION
  Report Type: Spontaneous
  Country: US (occurrence: US)
  Receive Date: 20251029
  Receipt Date: 20251029
  Transmission Date: 20260117
  Serious: No
  Sender: SANDOZ
  Company Number: US-SANDOZ-SDZ2025US078808

PATIENT

DRUGS (1)
  1. FERUMOXYTOL [Suspect]
     Active Substance: FERUMOXYTOL
     Indication: Product used for unknown indication
     Dosage: DOSAGE STRENGTH:  510MG/17ML 1LIVI , FREQUENCY : 1 TIME INJECTION
     Route: 065

REACTIONS (3)
  - Throat irritation [Unknown]
  - Sneezing [Unknown]
  - Dysphonia [Unknown]

NARRATIVE: CASE EVENT DATE: 20251020
